FAERS Safety Report 18164398 (Version 1)
Quarter: 2020Q3

REPORT INFORMATION
  Report Type: Spontaneous
  Country: DO (occurrence: DO)
  Receive Date: 20200818
  Receipt Date: 20200818
  Transmission Date: 20201103
  Serious: Yes (Other)
  Sender: FDA-Public Use
  Company Number: DO-PFIZER INC-2020318788

PATIENT
  Age: 93 Year
  Sex: Male

DRUGS (1)
  1. NORVASC [Suspect]
     Active Substance: AMLODIPINE BESYLATE
     Dosage: 2 DF, DAILY
     Route: 048

REACTIONS (3)
  - Overdose [Unknown]
  - Deafness [Unknown]
  - Illness [Unknown]
